FAERS Safety Report 9115540 (Version 2)
Quarter: 2020Q2

REPORT INFORMATION
  Report Type: Spontaneous
  Country: PT (occurrence: PT)
  Receive Date: 20130225
  Receipt Date: 20200622
  Transmission Date: 20200714
  Serious: Yes (Other)
  Sender: FDA-Public Use
  Company Number: PT-MERCK-1302PRT004051

PATIENT
  Age: 41 Year
  Sex: Female

DRUGS (18)
  1. PEGASYS [Suspect]
     Active Substance: PEGINTERFERON ALFA-2A
     Dosage: UNK
     Dates: start: 200804, end: 200805
  2. INDINAVIR SULFATE [Suspect]
     Active Substance: INDINAVIR SULFATE
     Dosage: UNK
     Dates: start: 2006
  3. SAQUINAVIR [Suspect]
     Active Substance: SAQUINAVIR
     Indication: ANTIRETROVIRAL THERAPY
     Dosage: JUL07-08 JUL10-UNK
     Dates: start: 200707, end: 2008
  4. PEGINTRON [Suspect]
     Active Substance: PEGINTERFERON ALFA-2B
     Dosage: UNK
     Dates: start: 2005, end: 2006
  5. RIBAVIRIN. [Suspect]
     Active Substance: RIBAVIRIN
     Indication: ANTIRETROVIRAL THERAPY
     Dosage: 1000 MG
     Dates: start: 2005, end: 2006
  6. INDINAVIR SULFATE [Suspect]
     Active Substance: INDINAVIR SULFATE
     Indication: ANTIRETROVIRAL THERAPY
     Dosage: 2005-2006 2006-UNK
     Dates: start: 2005, end: 2006
  7. ABACAVIR. [Suspect]
     Active Substance: ABACAVIR
     Indication: ANTIRETROVIRAL THERAPY
     Dosage: 2005-2008,JUL10-UNK
     Dates: start: 2005, end: 2008
  8. SAQUINAVIR [Suspect]
     Active Substance: SAQUINAVIR
     Dosage: UNK
     Dates: start: 201007
  9. NEVIRAPINE. [Suspect]
     Active Substance: NEVIRAPINE
     Dosage: UNK
     Dates: start: 2003, end: 2005
  10. LOPINAVIR (+) RITONAVIR [Suspect]
     Active Substance: LOPINAVIR\RITONAVIR
     Dosage: 100 MG
     Dates: start: 2005, end: 2005
  11. RITONAVIR. [Suspect]
     Active Substance: RITONAVIR
     Dosage: 2005-06 2006-UNK
     Dates: start: 2005
  12. LAMIVUDINE. [Suspect]
     Active Substance: LAMIVUDINE
     Dosage: UNK
     Dates: start: 2003, end: 2005
  13. RIBAVIRIN. [Suspect]
     Active Substance: RIBAVIRIN
     Dosage: CAPS 2005-2005 2005-2008
     Dates: start: 2006, end: 2008
  14. TENOFOVIR [Suspect]
     Active Substance: TENOFOVIR
     Dosage: UNK
     Dates: start: 201007
  15. ZIDOVUDINE. [Suspect]
     Active Substance: ZIDOVUDINE
     Indication: ANTIRETROVIRAL THERAPY
     Dosage: 2003-2005 2005-2005
     Dates: start: 2003, end: 2005
  16. ABACAVIR. [Suspect]
     Active Substance: ABACAVIR
     Dosage: UNK
     Dates: start: 201007
  17. TENOFOVIR [Suspect]
     Active Substance: TENOFOVIR
     Indication: ANTIRETROVIRAL THERAPY
     Dosage: 2005-UNK JUL10-UNK
     Dates: start: 2005
  18. EFAVIRENZ. [Suspect]
     Active Substance: EFAVIRENZ
     Indication: ANTIRETROVIRAL THERAPY
     Dosage: UNK
     Dates: start: 2003

REACTIONS (7)
  - Drug resistance [Unknown]
  - Fatigue [Unknown]
  - Hepatic cirrhosis [Unknown]
  - Drug intolerance [Unknown]
  - Nausea [Unknown]
  - Hypertension [Unknown]
  - Vomiting [Unknown]

NARRATIVE: CASE EVENT DATE: 2005
